FAERS Safety Report 12668012 (Version 1)
Quarter: 2016Q3

REPORT INFORMATION
  Report Type: Spontaneous
  Country: FR (occurrence: FR)
  Receive Date: 20160819
  Receipt Date: 20160819
  Transmission Date: 20161109
  Serious: Yes (Hospitalization)
  Sender: FDA-Public Use
  Company Number: FR-MYLANLABS-2016M1034721

PATIENT

DRUGS (4)
  1. MORPHINE RENAUDIN [Suspect]
     Active Substance: MORPHINE
     Dosage: 2 MG, UNK
     Route: 040
     Dates: start: 20160630, end: 20160703
  2. CIPROFLOXACINE MYLAN 750 MG, COMPRIM? PELLICUL? [Suspect]
     Active Substance: CIPROFLOXACIN
     Indication: PSEUDOMONAS INFECTION
     Dosage: 1 DF, BID
     Route: 048
     Dates: start: 20160625, end: 20160628
  3. MORPHINE RENAUDIN [Suspect]
     Active Substance: MORPHINE
     Indication: ANALGESIC THERAPY
     Dosage: 1 MG, UNK
     Route: 042
     Dates: start: 20160622, end: 20160628
  4. ACUPAN [Suspect]
     Active Substance: NEFOPAM HYDROCHLORIDE
     Indication: ANALGESIC THERAPY
     Dosage: 120 MG, QD
     Route: 042
     Dates: start: 20160603, end: 20160628

REACTIONS (7)
  - Hallucination [Recovered/Resolved]
  - Agitation [Recovered/Resolved]
  - Disorientation [Recovered/Resolved]
  - Retrograde amnesia [Recovered/Resolved]
  - Encephalopathy [None]
  - Myoclonus [Recovered/Resolved]
  - Bradyarrhythmia [None]

NARRATIVE: CASE EVENT DATE: 20160627
